FAERS Safety Report 7522536-7 (Version None)
Quarter: 2011Q2

REPORT INFORMATION
  Report Type: 
  Country: None (occurrence: None)
  Receive Date: 20110603
  Receipt Date: 20091130
  Transmission Date: 20111010
  Serious: Yes (Other)
  Sender: FDA-Public Use
  Company Number: US-BAYER-200941260NA

PATIENT
  Age: 42 Year
  Sex: Male
  Weight: 63 kg

DRUGS (8)
  1. ACETYLSALICYLIC ACID SRT [Concomitant]
     Dosage: 81 MG
     Route: 048
  2. LIPITOR [Concomitant]
     Dosage: 20 MG
     Route: 048
  3. TRASYLOL [Suspect]
     Indication: VASCULAR GRAFT
     Dosage: UNK
     Route: 042
     Dates: start: 20031218
  4. TRASYLOL [Suspect]
     Indication: CORONARY ARTERY BYPASS
     Dosage: UNK
     Route: 042
     Dates: start: 20040701
  5. LISINOPRIL [Concomitant]
     Dosage: 5 MG
     Route: 048
  6. AMICAR [Concomitant]
     Indication: CORONARY ARTERY BYPASS
     Dosage: UNK
     Dates: start: 20031218
  7. PLAVIX [Concomitant]
     Route: 048
  8. LASIX [Concomitant]
     Dosage: 20 MG
     Route: 048

REACTIONS (8)
  - CEREBROVASCULAR ACCIDENT [None]
  - UNEVALUABLE EVENT [None]
  - ANXIETY [None]
  - MYOCARDIAL INFARCTION [None]
  - STRESS [None]
  - PAIN [None]
  - EMOTIONAL DISTRESS [None]
  - FEAR [None]
